FAERS Safety Report 22126953 (Version 1)
Quarter: 2023Q1

REPORT INFORMATION
  Report Type: Spontaneous
  Country: US (occurrence: US)
  Receive Date: 20230322
  Receipt Date: 20230322
  Transmission Date: 20230417
  Serious: No
  Sender: FDA-Public Use
  Company Number: US-ALLERGAN-2306314US

PATIENT
  Sex: Female

DRUGS (1)
  1. ASACOL HD [Suspect]
     Active Substance: MESALAMINE
     Indication: Colitis ulcerative
     Dosage: 9 DF

REACTIONS (5)
  - Condition aggravated [Unknown]
  - Frequent bowel movements [Unknown]
  - Haematochezia [Unknown]
  - Dehydration [Unknown]
  - Product supply issue [Unknown]
